FAERS Safety Report 4615961-5 (Version None)
Quarter: 2005Q1

REPORT INFORMATION
  Report Type: 
  Country: None (occurrence: None)
  Receive Date: 20050318
  Receipt Date: 20050311
  Transmission Date: 20050727
  Serious: Yes (Life-Threatening, Hospitalization, Other)
  Sender: FDA-Public Use
  Company Number: 2005-00887

PATIENT
  Age: 29 Year
  Sex: Female

DRUGS (2)
  1. COLCHICINE (WATSON LABORATORIES) (COLCHICINE) TABLET, 0.6MG [Suspect]
     Indication: FAMILIAL MEDITERRANEAN FEVER
     Dosage: 1 MG, DAILY, ORAL
     Route: 048
  2. ERYTHROMYCIN [Suspect]
     Indication: BRONCHITIS ACUTE
     Dosage: 2 G, DAILY, ORAL
     Route: 048

REACTIONS (2)
  - DRUG INTERACTION [None]
  - DRUG TOXICITY [None]
